FAERS Safety Report 18256375 (Version 1)
Quarter: 2020Q3

REPORT INFORMATION
  Report Type: Spontaneous
  Country: US (occurrence: US)
  Receive Date: 20200911
  Receipt Date: 20200911
  Transmission Date: 20201103
  Serious: Yes (Hospitalization)
  Sender: FDA-Public Use
  Company Number: US-STRIDES ARCOLAB LIMITED-2019SP007598

PATIENT
  Age: 17 Year
  Sex: Male

DRUGS (2)
  1. TACROLIMUS. [Suspect]
     Active Substance: TACROLIMUS
     Indication: LIVER TRANSPLANT
  2. TACROLIMUS. [Suspect]
     Active Substance: TACROLIMUS
     Indication: IMMUNOSUPPRESSANT DRUG THERAPY
     Dosage: UNK
     Route: 048

REACTIONS (9)
  - Hyperkeratosis [Unknown]
  - Blister [Unknown]
  - Rash [Unknown]
  - Papule [Unknown]
  - Skin erosion [Unknown]
  - Acarodermatitis [Unknown]
  - Rash pruritic [Unknown]
  - Staphylococcal infection [Unknown]
  - Skin plaque [Unknown]
